FAERS Safety Report 7572548-2 (Version None)
Quarter: 2011Q2

REPORT INFORMATION
  Report Type: 
  Country: None (occurrence: None)
  Receive Date: 20110627
  Receipt Date: 20110617
  Transmission Date: 20111010
  Serious: Yes (Hospitalization)
  Sender: FDA-Public Use
  Company Number: DE-BIOGENIDEC-2011BI022417

PATIENT
  Age: 52 Year
  Sex: Female
  Weight: 68 kg

DRUGS (2)
  1. AVONEX [Suspect]
     Indication: MULTIPLE SCLEROSIS
     Route: 030
     Dates: start: 19970801
  2. ANTIHYPERTENSIVE DRUG NOS [Concomitant]
     Indication: HYPERTENSION
     Dates: start: 20000101

REACTIONS (5)
  - HEMIPLEGIA [None]
  - HYPERTENSION [None]
  - POST PROCEDURAL INFECTION [None]
  - CEREBRAL HAEMORRHAGE [None]
  - CENTRAL NERVOUS SYSTEM INFECTION [None]
